FAERS Safety Report 5130632-7 (Version None)
Quarter: 2006Q4

REPORT INFORMATION
  Report Type: 
  Country: None (occurrence: None)
  Receive Date: 20061017
  Receipt Date: 20061017
  Transmission Date: 20070319
  Serious: Yes (Hospitalization)
  Sender: FDA-Public Use
  Company Number: None

PATIENT
  Age: 54 Year
  Sex: Male
  Weight: 85.3 kg

DRUGS (3)
  1. MIRTAZAPINE [Suspect]
     Indication: DECREASED APPETITE
     Dosage: 15MG PO AT BEDTIME
     Route: 048
     Dates: start: 20060517, end: 20060608
  2. MIRTAZAPINE [Suspect]
     Indication: DEPRESSION
     Dosage: 15MG PO AT BEDTIME
     Route: 048
     Dates: start: 20060517, end: 20060608
  3. MIRTAZAPINE [Suspect]
     Indication: INSOMNIA
     Dosage: 15MG PO AT BEDTIME
     Route: 048
     Dates: start: 20060517, end: 20060608

REACTIONS (2)
  - PYREXIA [None]
  - THERAPY NON-RESPONDER [None]
